FAERS Safety Report 6609532-9 (Version None)
Quarter: 2010Q1

REPORT INFORMATION
  Report Type: 
  Country: None (occurrence: None)
  Receive Date: 20100224
  Receipt Date: 20100208
  Transmission Date: 20100710
  Serious: Yes (Other)
  Sender: FDA-Public Use
  Company Number: JPI-P-009432

PATIENT
  Age: 57 Year
  Sex: Male

DRUGS (3)
  1. XYREM [Suspect]
     Indication: CATAPLEXY
     Dosage: 4.5 GM (2.25 GM,2 IN 1 D),ORAL
     Route: 048
     Dates: start: 20080531, end: 20080619
  2. METHYLPHENIDATE HCL [Suspect]
     Indication: NARCOLEPSY
     Dosage: 20 MG (10 GM,2 IN 1 D),ORAL
     Route: 048
     Dates: start: 20061005
  3. FLUOXETINE [Concomitant]

REACTIONS (1)
  - HYPERKALAEMIA [None]
